FAERS Safety Report 5602120-2 (Version None)
Quarter: 2008Q1

REPORT INFORMATION
  Report Type: 
  Country: None (occurrence: None)
  Receive Date: 20080125
  Receipt Date: 20080116
  Transmission Date: 20080703
  Serious: Yes (Hospitalization)
  Sender: FDA-Public Use
  Company Number: PHHO2007ES20921

PATIENT
  Age: 74 Year
  Sex: Female
  Weight: 70.4 kg

DRUGS (15)
  1. TACROLIMUS [Suspect]
     Indication: RENAL TRANSPLANT
     Dosage: 0.5 MG, BID
     Route: 048
     Dates: start: 20071124
  2. MYFORTIC [Suspect]
     Indication: RENAL TRANSPLANT
     Dosage: 360 MG, BID
     Route: 048
     Dates: start: 20071124
  3. RENITEC [Concomitant]
  4. TACROLIMUS [Suspect]
     Indication: RENAL TRANSPLANT
     Dosage: 0.5 MG, BID
     Route: 048
     Dates: start: 20071122, end: 20071125
  5. ADIRO [Concomitant]
  6. CARVEDILOL [Concomitant]
  7. PREDNISONE TAB [Concomitant]
  8. AUGMENTIN '125' [Concomitant]
  9. VENTOLIN [Concomitant]
  10. ATROVENT [Concomitant]
  11. SEGURIL [Concomitant]
  12. LOSEC I.V. [Concomitant]
  13. SEPTRIN [Concomitant]
  14. MYCOSTATIN [Concomitant]
  15. CODEISAN [Concomitant]

REACTIONS (6)
  - COUGH [None]
  - DRUG INEFFECTIVE [None]
  - PYREXIA [None]
  - RENAL FAILURE ACUTE [None]
  - TRANSPLANT REJECTION [None]
  - URINE OUTPUT DECREASED [None]
